FAERS Safety Report 5144821-9 (Version None)
Quarter: 2006Q4

REPORT INFORMATION
  Report Type: 
  Country: None (occurrence: None)
  Receive Date: 20061107
  Receipt Date: 20061026
  Transmission Date: 20070319
  Serious: Yes (Death)
  Sender: FDA-Public Use
  Company Number: US-JNJFOC-20060900764

PATIENT
  Sex: Female
  Weight: 37.2 kg

DRUGS (4)
  1. FENTANYL TRANSDERMAL SYSTEM [Suspect]
     Indication: BACK PAIN
     Route: 062
  2. SYNTHROID [Concomitant]
     Indication: DRUG USE FOR UNKNOWN INDICATION
     Route: 048
  3. LORTAB [Concomitant]
     Indication: PAIN
     Route: 048
  4. RESTORIL [Concomitant]
     Indication: SLEEP DISORDER
     Dosage: AT NIGHT
     Route: 048

REACTIONS (1)
  - BRAIN NEOPLASM [None]
